FAERS Safety Report 16113198 (Version 1)
Quarter: 2019Q1

REPORT INFORMATION
  Report Type: Spontaneous
  Country: JP (occurrence: JP)
  Receive Date: 20190325
  Receipt Date: 20190325
  Transmission Date: 20190418
  Serious: Yes (Other)
  Sender: FDA-Public Use
  Company Number: JP-ALLERGAN-1904930US

PATIENT
  Sex: Male

DRUGS (3)
  1. BOTOX [Suspect]
     Active Substance: ONABOTULINUMTOXINA
     Dosage: UNK UNK, SINGLE
     Route: 030
  2. BOTOX [Suspect]
     Active Substance: ONABOTULINUMTOXINA
     Indication: MUSCLE SPASMS
     Dosage: 15-16 (DOSES), SINGLE
     Route: 030
     Dates: start: 20190308, end: 20190308
  3. BOTOX [Suspect]
     Active Substance: ONABOTULINUMTOXINA
     Dosage: UNK UNK, SINGLE
     Route: 030
     Dates: start: 20181207, end: 20181207

REACTIONS (5)
  - Internal haemorrhage [Recovering/Resolving]
  - Drug effect incomplete [Unknown]
  - Angiopathy [Recovering/Resolving]
  - Foot deformity [Unknown]
  - Pain [Unknown]

NARRATIVE: CASE EVENT DATE: 2019
